FAERS Safety Report 20547948 (Version 1)
Quarter: 2022Q1

REPORT INFORMATION
  Report Type: Spontaneous
  Country: US (occurrence: US)
  Receive Date: 20220303
  Receipt Date: 20220303
  Transmission Date: 20220423
  Serious: No
  Sender: FDA-Public Use
  Company Number: US-PFIZER INC-2021814645

PATIENT
  Age: 62 Year
  Sex: Female

DRUGS (1)
  1. XELJANZ XR [Suspect]
     Active Substance: TOFACITINIB CITRATE
     Dosage: 11 MG, DAILY
     Route: 048
     Dates: start: 20210622

REACTIONS (7)
  - Abdominal discomfort [Unknown]
  - Abdominal distension [Unknown]
  - Migraine [Unknown]
  - Dyspnoea [Recovered/Resolved]
  - Dizziness [Unknown]
  - Feeding disorder [Not Recovered/Not Resolved]
  - Malaise [Not Recovered/Not Resolved]
